FAERS Safety Report 11874080 (Version 9)
Quarter: 2021Q3

REPORT INFORMATION
  Report Type: Spontaneous
  Country: JP (occurrence: JP)
  Receive Date: 20151229
  Receipt Date: 20210705
  Transmission Date: 20211014
  Serious: Yes (Death, Other)
  Sender: FDA-Public Use
  Company Number: JP-009507513-1512JPN013004

PATIENT
  Age: 50 Year
  Sex: Male
  Weight: 93 kg

DRUGS (4)
  1. ESLAX INTRAVENOUS 50MG/5.0ML [Suspect]
     Active Substance: ROCURONIUM BROMIDE
     Indication: NEUROMUSCULAR BLOCKING THERAPY
     Dosage: 50 MG/DOSE
     Route: 042
     Dates: start: 201512, end: 201512
  2. ESLAX INTRAVENOUS 25MG/2.5ML [Suspect]
     Active Substance: ROCURONIUM BROMIDE
     Indication: NEUROMUSCULAR BLOCKING THERAPY
     Dosage: 80 MG, QD
     Route: 042
     Dates: start: 20151222, end: 20151222
  3. PROPOFOL. [Suspect]
     Active Substance: PROPOFOL
     Indication: INDUCTION OF ANAESTHESIA
     Dosage: NUMBER OF DIVIDED DOSES UNKNOWN
     Route: 042
     Dates: start: 20151222, end: 20151222
  4. ULTIVA [Suspect]
     Active Substance: REMIFENTANIL HYDROCHLORIDE
     Indication: INDUCTION OF ANAESTHESIA
     Dosage: CONTINUATION OF 0.3 GAMMA
     Route: 042
     Dates: start: 20151222, end: 20151222

REACTIONS (4)
  - Ventricular fibrillation [Fatal]
  - Arteriospasm coronary [Fatal]
  - Cardiac arrest [Fatal]
  - Anaphylactic reaction [Fatal]

NARRATIVE: CASE EVENT DATE: 20151222
